FAERS Safety Report 9844694 (Version 1)
Quarter: 2014Q1

REPORT INFORMATION
  Report Type: Spontaneous
  Country: GB (occurrence: None)
  Receive Date: 20140122
  Receipt Date: 20140122
  Transmission Date: 20141002
  Serious: Yes (Other)
  Sender: FDA-Public Use
  Company Number: AUR-APL-2014-00402

PATIENT
  Age: 65 Year
  Sex: Female

DRUGS (4)
  1. LISINOPRIL (LISINOPRIL) [Suspect]
     Indication: HYPERTENSION
     Dosage: (2.5 MG), ORAL
     Route: 048
     Dates: start: 20131030, end: 20131220
  2. BENDROFLUAZIDE (BENDROFLUMETHIAZIDE) [Concomitant]
  3. ESTRADERM (ESTRADIOL) [Concomitant]
  4. VASCACE (CILAZAPRIL) [Concomitant]

REACTIONS (2)
  - Memory impairment [None]
  - Product substitution issue [None]
